FAERS Safety Report 9470684 (Version 2)
Quarter: 2013Q3

REPORT INFORMATION
  Report Type: Report from Study
  Country: US (occurrence: US)
  Receive Date: 20130822
  Receipt Date: 20130822
  Transmission Date: 20140515
  Serious: Yes (Hospitalization)
  Sender: FDA-Public Use
  Company Number: US-MYLANLABS-2013S1018310

PATIENT
  Age: 20 Year
  Sex: Female

DRUGS (1)
  1. AMNESTEEM CAPSULES [Suspect]
     Indication: ACNE CYSTIC
     Route: 048
     Dates: start: 201304, end: 201308

REACTIONS (2)
  - Road traffic accident [Recovered/Resolved]
  - Coma [Not Recovered/Not Resolved]
